FAERS Safety Report 5716988-2 (Version None)
Quarter: 2008Q2

REPORT INFORMATION
  Report Type: 
  Country: None (occurrence: None)
  Receive Date: 20080424
  Receipt Date: 20080416
  Transmission Date: 20081010
  Serious: Yes (Other)
  Sender: FDA-Public Use
  Company Number: BR-PFIZER INC-2007054974

PATIENT
  Age: 64 Year
  Sex: Female

DRUGS (5)
  1. FRONTAL [Suspect]
     Indication: BLOOD PRESSURE MANAGEMENT
     Route: 048
  2. PROPRANOLOL HYDROCHLORIDE + HYDROCHLOROTHIAZIDE [Concomitant]
     Route: 048
  3. GLUCOFORMIN [Concomitant]
     Route: 048
  4. DIOSMIN [Concomitant]
     Route: 048
  5. LASIX [Concomitant]
     Route: 048

REACTIONS (6)
  - BLOOD PRESSURE DECREASED [None]
  - BONE PAIN [None]
  - DRUG DEPENDENCE [None]
  - PHLEBITIS [None]
  - SPINAL DISORDER [None]
  - WOUND [None]
